FAERS Safety Report 18173095 (Version 1)
Quarter: 2020Q3

REPORT INFORMATION
  Report Type: Spontaneous
  Country: US (occurrence: US)
  Receive Date: 20200820
  Receipt Date: 20200820
  Transmission Date: 20201103
  Serious: Yes (Death, Hospitalization, Other)
  Sender: FDA-Public Use
  Company Number: US-LUPIN PHARMACEUTICALS INC.-2020-04807

PATIENT
  Age: 43 Year
  Sex: Male

DRUGS (9)
  1. CLONIDINE. [Suspect]
     Active Substance: CLONIDINE
     Indication: ALCOHOL WITHDRAWAL SYNDROME
     Dosage: 0.1 MG QD ( TWO PATCHES, ONE WAS SUPPOSED TO BE REMOVED IN 3 DAYS AND OTHER ON THE 4TH DAY)
     Route: 061
  2. VENLAFAXINE [Concomitant]
     Active Substance: VENLAFAXINE HYDROCHLORIDE
     Indication: MAJOR DEPRESSION
     Dosage: 37.5 MILLIGRAM, QD
     Route: 065
  3. GABAPENTIN. [Interacting]
     Active Substance: GABAPENTIN
     Dosage: 300 MILLIGRAM, QD (2 CAPSULE)
     Route: 048
  4. FOLIC ACID. [Concomitant]
     Active Substance: FOLIC ACID
     Indication: PRODUCT USED FOR UNKNOWN INDICATION
     Dosage: 1 MILLIGRAM, QD
     Route: 048
  5. GABAPENTIN. [Interacting]
     Active Substance: GABAPENTIN
     Indication: ALCOHOL WITHDRAWAL SYNDROME
     Dosage: 300 MILLIGRAM, TID (1 CAPSULE)
     Route: 048
  6. EPINEPHRINE. [Concomitant]
     Active Substance: EPINEPHRINE
     Indication: VASOPRESSIVE THERAPY
     Dosage: 5 MILLIGRAM
     Route: 065
  7. GABAPENTIN. [Interacting]
     Active Substance: GABAPENTIN
     Dosage: 300 MILLIGRAM, BID (1 CAPSULE)
     Route: 048
  8. PREDNISONE. [Interacting]
     Active Substance: PREDNISONE
     Indication: ALCOHOL WITHDRAWAL SYNDROME
     Dosage: 20 MILLIGRAM QD (3 TABLETS EVERY MORNING FOR 28 DAYS, THEN TAPER OFF)
     Route: 048
  9. MULTIVITAMIN IRON [Concomitant]
     Indication: PRODUCT USED FOR UNKNOWN INDICATION
     Dosage: 1 DOSAGE FORM, QD
     Route: 048

REACTIONS (6)
  - Cardiac arrest [Fatal]
  - Suicidal ideation [Fatal]
  - Completed suicide [Fatal]
  - Drug interaction [Fatal]
  - Gun shot wound [Fatal]
  - Off label use [Fatal]
